FAERS Safety Report 9009452 (Version 1)
Quarter: 2013Q1

REPORT INFORMATION
  Report Type: Spontaneous
  Country: CA (occurrence: CA)
  Receive Date: 20130112
  Receipt Date: 20130112
  Transmission Date: 20140127
  Serious: Yes (Death, Hospitalization)
  Sender: FDA-Public Use
  Company Number: CA-AMGEN-CANSP2012071379

PATIENT
  Age: 60 Year
  Sex: Female
  Weight: 74.83 kg

DRUGS (2)
  1. XGEVA [Suspect]
     Indication: BREAST CANCER METASTATIC
     Dosage: 120 MG, Q4SEM
     Route: 058
     Dates: start: 20120927
  2. EPIRUBICINE [Concomitant]
     Indication: BREAST CANCER
     Dosage: 140 MG, Q3S
     Route: 042

REACTIONS (1)
  - Metastases to central nervous system [Fatal]
